FAERS Safety Report 15570106 (Version 1)
Quarter: 2018Q4

REPORT INFORMATION
  Report Type: Spontaneous
  Country: DK (occurrence: DK)
  Receive Date: 20181031
  Receipt Date: 20181031
  Transmission Date: 20190205
  Serious: Yes (Other)
  Sender: FDA-Public Use
  Company Number: DK-TEVA-2018-DK-970203

PATIENT
  Age: 74 Year
  Sex: Female

DRUGS (6)
  1. ATORVASTATIN ^TEVA^ [Concomitant]
     Active Substance: ATORVASTATIN
     Indication: HYPERCHOLESTEROLAEMIA
     Dosage: 80 MILLIGRAM DAILY; STRENGTH: 80 MG.
     Route: 048
     Dates: start: 2016
  2. METRONIDAZOL ^ACTAVIS^ [Suspect]
     Active Substance: METRONIDAZOLE
     Indication: TOOTH ABSCESS
     Dosage: 1500 MILLIGRAM DAILY; STRENGTH: 500 MG.
     Route: 048
     Dates: start: 20180927, end: 20181003
  3. ANCOZAN [Concomitant]
     Active Substance: LOSARTAN POTASSIUM
     Indication: CARDIAC FAILURE
     Dosage: 50 MILLIGRAM DAILY; STRENGTH: 50 MG.
     Route: 048
     Dates: start: 2017
  4. HJERTEMAGNYL [Concomitant]
     Active Substance: ASPIRIN\MAGNESIUM OXIDE
     Indication: THROMBOSIS PROPHYLAXIS
     Dosage: 75 MILLIGRAM DAILY;
     Route: 048
     Dates: start: 2016
  5. METOPROLOLSUCCINAT ^HEXAL^ [Concomitant]
     Active Substance: METOPROLOL SUCCINATE
     Indication: HYPERTENSION
     Dosage: 50 MILLIGRAM DAILY; STRENGTH: 50 MG.
     Route: 048
     Dates: start: 2016
  6. VEPICOMBIN NOVUM [Concomitant]
     Active Substance: PENICILLIN V POTASSIUM
     Indication: TOOTH ABSCESS
     Dosage: STRENGTH: 1 MILLION. IE
     Route: 048
     Dates: start: 20180927, end: 20181003

REACTIONS (3)
  - Dizziness [Not Recovered/Not Resolved]
  - Cognitive disorder [Not Recovered/Not Resolved]
  - Encephalopathy [Not Recovered/Not Resolved]

NARRATIVE: CASE EVENT DATE: 201810
